FAERS Safety Report 7355147-7 (Version None)
Quarter: 2011Q1

REPORT INFORMATION
  Report Type: 
  Country: None (occurrence: None)
  Receive Date: 20110311
  Receipt Date: 20110311
  Transmission Date: 20110831
  Serious: Yes (Life-Threatening, Hospitalization, Other)
  Sender: FDA-Public Use
  Company Number: None

PATIENT
  Sex: Female
  Weight: 136.0791 kg

DRUGS (2)
  1. FUROSEMIDE [Suspect]
     Indication: HYPERTENSION
     Dosage: 40 MIL. DAILY
     Dates: start: 20020101, end: 20090101
  2. FUROSEMIDE [Suspect]
     Indication: FLUID RETENTION
     Dosage: 40 MIL. DAILY
     Dates: start: 20020101, end: 20090101

REACTIONS (2)
  - REFUSAL OF TREATMENT BY PATIENT [None]
  - NEPHROLITHIASIS [None]
